FAERS Safety Report 14377214 (Version 1)
Quarter: 2018Q1

REPORT INFORMATION
  Report Type: Spontaneous
  Country: US (occurrence: US)
  Receive Date: 20180111
  Receipt Date: 20180111
  Transmission Date: 20180509
  Serious: No
  Sender: FDA-Public Use
  Company Number: US-LUNDBECK-DKLU2036300

PATIENT
  Sex: Female

DRUGS (1)
  1. NORTHERA [Suspect]
     Active Substance: DROXIDOPA
     Indication: PRODUCT USED FOR UNKNOWN INDICATION
     Dosage: SCHEDULE B
     Route: 048

REACTIONS (5)
  - Therapeutic response shortened [Unknown]
  - Prescribed overdose [Unknown]
  - Feeling abnormal [Unknown]
  - Dizziness [Unknown]
  - Orthostatic hypotension [Unknown]
